FAERS Safety Report 5703482-8 (Version None)
Quarter: 2008Q2

REPORT INFORMATION
  Report Type: 
  Country: None (occurrence: None)
  Receive Date: 20080411
  Receipt Date: 20080331
  Transmission Date: 20081010
  Serious: Yes (Life-Threatening, Hospitalization)
  Sender: FDA-Public Use
  Company Number: FR-GENENTECH-258932

PATIENT
  Age: 69 Year
  Sex: Male

DRUGS (7)
  1. MABTHERA [Suspect]
     Indication: B-CELL LYMPHOMA
     Dosage: 718 MG, UNK
  2. SOLU-MEDROL [Concomitant]
     Indication: PREMEDICATION
  3. POLARAMINE [Concomitant]
     Indication: PREMEDICATION
  4. ALLOPURINOL [Concomitant]
     Indication: PREMEDICATION
  5. PREDNISONE [Concomitant]
     Indication: PREMEDICATION
  6. NEXIUM [Concomitant]
     Indication: PREMEDICATION
  7. DAFALGAN [Concomitant]
     Indication: PREMEDICATION

REACTIONS (1)
  - ANAPHYLACTIC SHOCK [None]
